FAERS Safety Report 23237810 (Version 1)
Quarter: 2023Q4

REPORT INFORMATION
  Report Type: Spontaneous
  Country: FR (occurrence: FR)
  Receive Date: 20231128
  Receipt Date: 20231128
  Transmission Date: 20240109
  Serious: Yes (Other)
  Sender: FDA-Public Use
  Company Number: None

PATIENT
  Age: 79 Year
  Sex: Male

DRUGS (7)
  1. ATORVASTATIN [Suspect]
     Active Substance: ATORVASTATIN
     Indication: Coronary artery disease
     Dosage: 10 MG/D FROM JUNE 2022 TO THE END OF 2022 40 MG/D FROM THE END OF 2022 TO 23/08/2023
     Dates: start: 202206, end: 20230823
  2. EZETIMIBE [Suspect]
     Active Substance: EZETIMIBE
     Indication: Coronary artery disease
     Dates: start: 202211, end: 202307
  3. DAPAGLIFLOZIN\METFORMIN HYDROCHLORIDE [Suspect]
     Active Substance: DAPAGLIFLOZIN\METFORMIN HYDROCHLORIDE
     Indication: Type 2 diabetes mellitus
     Dates: start: 202302, end: 202307
  4. JANUMET [Concomitant]
     Active Substance: METFORMIN HYDROCHLORIDE\SITAGLIPTIN PHOSPHATE
     Dates: start: 2013, end: 202302
  5. ASPIRIN [Concomitant]
     Active Substance: ASPIRIN
     Dates: start: 202211
  6. METFORMIN [Concomitant]
     Active Substance: METFORMIN HYDROCHLORIDE
     Dates: start: 202307
  7. RAMIPRIL [Concomitant]
     Active Substance: RAMIPRIL
     Dosage: 2.5 MG/D SINCE THE END OF 2022 10 MG/D SINCE MAY 2023
     Dates: start: 2022

REACTIONS (1)
  - Vanishing bile duct syndrome [Recovering/Resolving]

NARRATIVE: CASE EVENT DATE: 20230626
